FAERS Safety Report 10878926 (Version 1)
Quarter: 2015Q1

REPORT INFORMATION
  Report Type: Spontaneous
  Country: US (occurrence: None)
  Receive Date: 20150224
  Receipt Date: 20150224
  Transmission Date: 20150721
  Serious: Yes (Disabling, Other)
  Sender: FDA-Public Use
  Company Number: None

PATIENT
  Age: 18 Year
  Sex: Female
  Weight: 56.7 kg

DRUGS (3)
  1. NIFIDIPINE [Concomitant]
  2. PROBIOTIC [Concomitant]
     Active Substance: PROBIOTICS NOS
  3. VYVANSE [Suspect]
     Active Substance: LISDEXAMFETAMINE DIMESYLATE
     Indication: ATTENTION DEFICIT/HYPERACTIVITY DISORDER
     Route: 048
     Dates: start: 20130504, end: 20141213

REACTIONS (13)
  - Skin discolouration [None]
  - Raynaud^s phenomenon [None]
  - Educational problem [None]
  - Pain in extremity [None]
  - Syncope [None]
  - Diplopia [None]
  - Peripheral swelling [None]
  - Chillblains [None]
  - Skin ulcer [None]
  - Activities of daily living impaired [None]
  - Concussion [None]
  - Hyperaesthesia [None]
  - Systemic lupus erythematosus [None]

NARRATIVE: CASE EVENT DATE: 20150214
